FAERS Safety Report 9110145 (Version 6)
Quarter: 2015Q2

REPORT INFORMATION
  Report Type: Report from Study
  Country: CA (occurrence: CA)
  Receive Date: 20130222
  Receipt Date: 20150424
  Transmission Date: 20150821
  Serious: Yes (Other)
  Sender: FDA-Public Use
  Company Number: CA-ROCHE-1193296

PATIENT
  Age: 29 Year
  Sex: Male
  Weight: 90.9 kg

DRUGS (8)
  1. METHYLPREDNISOLONE. [Concomitant]
     Active Substance: METHYLPREDNISOLONE
     Route: 042
     Dates: start: 20110329
  2. ADVIL [Concomitant]
     Active Substance: IBUPROFEN
  3. RITUXAN [Suspect]
     Active Substance: RITUXIMAB
     Indication: PEMPHIGUS
     Dosage: DAY 1 AND 15
     Route: 042
     Dates: start: 20110329
  4. IMURAN [Concomitant]
     Active Substance: AZATHIOPRINE
  5. CELLCEPT [Suspect]
     Active Substance: MYCOPHENOLATE MOFETIL\MYCOPHENOLATE MOFETIL HYDROCHLORIDE
     Indication: PEMPHIGUS
     Route: 065
  6. RITUXAN [Suspect]
     Active Substance: RITUXIMAB
     Route: 042
     Dates: start: 20140717
  7. ACETAMINOPHEN. [Concomitant]
     Active Substance: ACETAMINOPHEN
     Indication: PREMEDICATION
     Route: 048
     Dates: start: 20110329
  8. DIPHENHYDRAMINE HCL [Concomitant]
     Active Substance: DIPHENHYDRAMINE HYDROCHLORIDE
     Indication: PREMEDICATION
     Route: 048
     Dates: start: 20110329

REACTIONS (12)
  - Acute febrile neutrophilic dermatosis [Recovered/Resolved]
  - Loss of consciousness [Recovered/Resolved]
  - Dizziness [Recovered/Resolved]
  - Presyncope [Unknown]
  - Arthralgia [Recovered/Resolved]
  - Therapeutic response decreased [Unknown]
  - Off label use [Unknown]
  - Pemphigus [Not Recovered/Not Resolved]
  - Headache [Recovered/Resolved]
  - Malaise [Recovered/Resolved]
  - Treatment failure [Unknown]
  - Vomiting [Recovered/Resolved]

NARRATIVE: CASE EVENT DATE: 20130215
